FAERS Safety Report 8625184 (Version 2)
Quarter: 2013Q3

REPORT INFORMATION
  Report Type: Spontaneous
  Country: US (occurrence: US)
  Receive Date: 20120620
  Receipt Date: 20130925
  Transmission Date: 20140515
  Serious: No
  Sender: FDA-Public Use
  Company Number: US-ASTRAZENECA-2012SE00697

PATIENT
  Age: 557 Month
  Sex: Female
  Weight: 96.6 kg

DRUGS (14)
  1. SEROQUEL XR [Suspect]
     Indication: BIPOLAR DISORDER
     Route: 048
  2. SEROQUEL XR [Suspect]
     Indication: MOOD SWINGS
     Route: 048
  3. SEROQUEL XR [Suspect]
     Indication: ANXIETY
     Route: 048
  4. SEROQUEL XR [Suspect]
     Indication: SLEEP DISORDER
     Route: 048
  5. SEROQUEL XR [Suspect]
     Indication: BIPOLAR DISORDER
     Route: 048
  6. SEROQUEL XR [Suspect]
     Indication: MOOD SWINGS
     Route: 048
  7. SEROQUEL XR [Suspect]
     Indication: ANXIETY
     Route: 048
  8. SEROQUEL XR [Suspect]
     Indication: SLEEP DISORDER
     Route: 048
  9. SEROQUEL XR [Suspect]
     Indication: BIPOLAR DISORDER
     Route: 048
  10. SEROQUEL XR [Suspect]
     Indication: MOOD SWINGS
     Route: 048
  11. SEROQUEL XR [Suspect]
     Indication: ANXIETY
     Route: 048
  12. SEROQUEL XR [Suspect]
     Indication: SLEEP DISORDER
     Route: 048
  13. VISTARIL [Concomitant]
     Indication: ANXIETY
  14. LITHIUM [Concomitant]
     Indication: BIPOLAR DISORDER

REACTIONS (9)
  - Depression [Unknown]
  - Amnesia [Unknown]
  - Frustration [Unknown]
  - Mental disorder [Unknown]
  - Mood swings [Unknown]
  - Anxiety [Unknown]
  - Insomnia [Unknown]
  - Mood altered [Unknown]
  - Drug dose omission [Unknown]
